FAERS Safety Report 9753113 (Version 1)
Quarter: 2013Q4

REPORT INFORMATION
  Report Type: Spontaneous
  Country: US (occurrence: US)
  Receive Date: 20131213
  Receipt Date: 20131213
  Transmission Date: 20140711
  Serious: No
  Sender: FDA-Public Use
  Company Number: US-GILEAD-2010-0026916

PATIENT
  Age: 71 Year
  Sex: Female

DRUGS (11)
  1. LETAIRIS [Suspect]
     Indication: PULMONARY ARTERIAL HYPERTENSION
     Route: 048
  2. REVATIO [Concomitant]
  3. WARFARIN [Concomitant]
  4. FUROSEMIDE [Concomitant]
  5. SPIRONOLACTONE [Concomitant]
  6. ZETIA [Concomitant]
  7. CITALOPRAM [Concomitant]
  8. FERROUS GLUCONATE [Concomitant]
  9. OMEPRAZOLE [Concomitant]
  10. L THYROXINE [Concomitant]
  11. VIT D [Concomitant]

REACTIONS (4)
  - Epistaxis [Not Recovered/Not Resolved]
  - Fatigue [Not Recovered/Not Resolved]
  - Nasal congestion [Recovered/Resolved]
  - Dyspnoea [Not Recovered/Not Resolved]
